FAERS Safety Report 9737001 (Version 2)
Quarter: 2013Q4

REPORT INFORMATION
  Report Type: Spontaneous
  Country: US (occurrence: US)
  Receive Date: 20131206
  Receipt Date: 20131206
  Transmission Date: 20140711
  Serious: No
  Sender: FDA-Public Use
  Company Number: US-GILEAD-2009-0023009

PATIENT
  Sex: Female
  Weight: 76.2 kg

DRUGS (15)
  1. LETAIRIS [Suspect]
     Indication: PULMONARY ARTERIAL HYPERTENSION
     Route: 048
     Dates: start: 20090622
  2. OXYGEN [Concomitant]
  3. FUROSEMIDE [Concomitant]
  4. DARVOCET-N [Concomitant]
  5. CALCIUM [Concomitant]
  6. FOSAMAX [Concomitant]
  7. MULTIVITAMIN [Concomitant]
  8. AMLODIPINE [Concomitant]
  9. LISINOPRIL [Concomitant]
  10. GLIPIZIDE-METFORMIN [Concomitant]
  11. MAGNESIUM [Concomitant]
  12. ALEVE [Concomitant]
  13. BYSTOLIC [Concomitant]
  14. COMBIVENT INHALER [Concomitant]
  15. OMEPRAZOLE [Concomitant]

REACTIONS (1)
  - Feeling abnormal [Unknown]
